FAERS Safety Report 10982964 (Version 1)
Quarter: 2015Q2

REPORT INFORMATION
  Report Type: Spontaneous
  Country: US (occurrence: None)
  Receive Date: 20150402
  Receipt Date: 20150402
  Transmission Date: 20150821
  Serious: Yes (Disabling)
  Sender: FDA-Public Use
  Company Number: None

PATIENT
  Age: 71 Year
  Sex: Female
  Weight: 44.45 kg

DRUGS (5)
  1. CARAFATE [Concomitant]
     Active Substance: SUCRALFATE
  2. PROLIA [Suspect]
     Active Substance: DENOSUMAB
     Indication: OSTEOPOROSIS
     Dosage: SHOT ONCE EVERY 6 MONTHS INTO THE MUSCLE
     Route: 030
     Dates: start: 20130326, end: 20140612
  3. CALCIUM [Concomitant]
     Active Substance: CALCIUM
  4. VITAMIN D [Concomitant]
     Active Substance: CHOLECALCIFEROL
  5. ZOCOR [Concomitant]
     Active Substance: SIMVASTATIN

REACTIONS (6)
  - Pain [None]
  - Dermatitis [None]
  - Blood cholesterol increased [None]
  - Back pain [None]
  - Groin pain [None]
  - Sciatica [None]

NARRATIVE: CASE EVENT DATE: 20140612
